FAERS Safety Report 7879754-8 (Version None)
Quarter: 2011Q4

REPORT INFORMATION
  Report Type: 
  Country: None (occurrence: None)
  Receive Date: 20111101
  Receipt Date: 20111027
  Transmission Date: 20120403
  Serious: Yes (Death, Other)
  Sender: FDA-Public Use
  Company Number: US-ELI_LILLY_AND_COMPANY-US201110005515

PATIENT
  Age: 80 Year
  Sex: Male

DRUGS (1)
  1. EFFIENT [Suspect]
     Dosage: 5 MG, UNKNOWN
     Route: 065
     Dates: start: 20110101

REACTIONS (2)
  - SEPSIS [None]
  - DEATH [None]
